FAERS Safety Report 9014145 (Version 1)
Quarter: 2013Q1

REPORT INFORMATION
  Report Type: Spontaneous
  Country: IT (occurrence: IT)
  Receive Date: 20130115
  Receipt Date: 20130115
  Transmission Date: 20140127
  Serious: Yes (Hospitalization)
  Sender: FDA-Public Use
  Company Number: IT-TEVA-380143ISR

PATIENT
  Age: 46 Year
  Sex: Female

DRUGS (1)
  1. ALPRAZOLAM [Suspect]
     Dosage: 200 DOSAGE FORMS DAILY;
     Route: 048
     Dates: start: 20121112, end: 20121112

REACTIONS (3)
  - Somnolence [Recovered/Resolved]
  - Sopor [Recovered/Resolved]
  - Drug administration error [Recovered/Resolved]
